FAERS Safety Report 12428696 (Version 1)
Quarter: 2016Q2

REPORT INFORMATION
  Report Type: Spontaneous
  Country: KR (occurrence: KR)
  Receive Date: 20160602
  Receipt Date: 20160602
  Transmission Date: 20160815
  Serious: Yes (Hospitalization)
  Sender: FDA-Public Use
  Company Number: KR-WATSON-2016-11244

PATIENT
  Age: 32 Year
  Sex: Female

DRUGS (4)
  1. DROSPIRENONE AND ETHINYL ESTRADIOL [Suspect]
     Active Substance: DROSPIRENONE\ETHINYL ESTRADIOL
     Indication: POLYCYSTIC OVARIES
     Dosage: 1 DF, UNKNOWN
     Route: 065
  2. ESTROGEN NOS [Suspect]
     Active Substance: ESTROGENS
     Indication: IN VITRO FERTILISATION
     Dosage: 1.25 MG, UNKNOWN
     Route: 065
  3. ESTROGEN NOS [Suspect]
     Active Substance: ESTROGENS
     Dosage: 1.25 MG, UNKNOWN
     Route: 065
  4. DYDROGESTERONE [Suspect]
     Active Substance: DYDROGESTERONE
     Indication: IN VITRO FERTILISATION
     Dosage: 10 MG, UNKNOWN
     Route: 065

REACTIONS (1)
  - Renal haemorrhage [Recovered/Resolved]
